FAERS Safety Report 22322323 (Version 1)
Quarter: 2023Q2

REPORT INFORMATION
  Report Type: Spontaneous
  Country: US (occurrence: US)
  Receive Date: 20230516
  Receipt Date: 20230516
  Transmission Date: 20230721
  Serious: No
  Sender: FDA-Public Use
  Company Number: US-SA-SAC20230512000947

PATIENT
  Sex: Male
  Weight: 65.77 kg

DRUGS (1)
  1. FABRAZYME [Suspect]
     Active Substance: AGALSIDASE BETA
     Indication: Fabry^s disease
     Dosage: 65MG, QOW (35MG+30MG, EVERY 2 WEEKS)
     Route: 042
     Dates: start: 20220103

REACTIONS (1)
  - Weight increased [Unknown]
